FAERS Safety Report 8487007-2 (Version None)
Quarter: 2012Q3

REPORT INFORMATION
  Report Type: 
  Country: None (occurrence: None)
  Receive Date: 20120704
  Receipt Date: 20120629
  Transmission Date: 20120928
  Serious: Yes (Life-Threatening, Other)
  Sender: FDA-Public Use
  Company Number: PHEH2012US007758

PATIENT
  Sex: Female

DRUGS (6)
  1. LEXAPRO [Concomitant]
  2. SUTENT [Suspect]
  3. MULTI-VITAMINS [Concomitant]
  4. SYNTHROID [Concomitant]
  5. CALCIUM [Concomitant]
  6. GLEEVEC [Suspect]
     Dosage: UNK UKN, UNK

REACTIONS (3)
  - NEOPLASM PROGRESSION [None]
  - FEELING ABNORMAL [None]
  - DRUG INEFFECTIVE [None]
